FAERS Safety Report 24291701 (Version 2)
Quarter: 2024Q3

REPORT INFORMATION
  Report Type: Report from Study
  Country: DE (occurrence: DE)
  Receive Date: 20240906
  Receipt Date: 20240911
  Transmission Date: 20241017
  Serious: Yes (Hospitalization)
  Sender: ALNYLAM PHARMACEUTICALS
  Company Number: DE-ALNYLAM PHARMACEUTICALS, INC.-ALN-2024-004893

PATIENT

DRUGS (12)
  1. GIVLAARI [Suspect]
     Active Substance: GIVOSIRAN SODIUM
     Indication: Porphyria acute
     Dosage: 2.5 MILLIGRAM/KILOGRAM, MONTHLY (ONCE A MONTH (QM))
     Route: 065
     Dates: start: 20240111, end: 20240111
  2. GIVLAARI [Suspect]
     Active Substance: GIVOSIRAN SODIUM
     Dosage: 2.5 MILLIGRAM/KILOGRAM, MONTHLY (ONCE A MONTH (QM))
     Route: 065
     Dates: start: 20240212, end: 20240212
  3. Bisoprolol hemifumarat [Concomitant]
     Indication: Tachycardia
     Dosage: 1.25 MILLIGRAM, QID (AS NEEDED)
     Route: 048
     Dates: end: 202403
  4. CARBOHYDRATES\FATTY ACIDS\MINERALS\PROTEIN\VITAMINS [Concomitant]
     Active Substance: CARBOHYDRATES\FATTY ACIDS\MINERALS\PROTEIN\VITAMINS
     Indication: Underweight
     Dosage: 200 MILLILITER, TID (AS NEEDED)
     Route: 048
     Dates: start: 202401, end: 202403
  5. CHOLECALCIFEROL [Concomitant]
     Active Substance: CHOLECALCIFEROL
     Indication: Vitamin D deficiency
     Dosage: 1000 INTERNATIONAL UNIT, QD (AS NEEDED)
     Route: 048
     Dates: end: 202403
  6. Tamsulosin hydrochlorid [Concomitant]
     Indication: Micturition disorder
     Dosage: 0.4 MILLIGRAM, QD (AS NEEDED)
     Route: 048
     Dates: end: 202403
  7. PREGABALIN [Concomitant]
     Active Substance: PREGABALIN
     Indication: Neuropathy peripheral
     Dosage: 150 MILLIGRAM, TID (AS NEEDED)
     Route: 048
     Dates: end: 202403
  8. PANTOPRAZOLE SODIUM [Concomitant]
     Active Substance: PANTOPRAZOLE SODIUM
     Indication: Prophylaxis
     Dosage: 40 MILLIGRAM, QD (AS NEEDED)
     Route: 048
     Dates: start: 20231222, end: 202402
  9. MCP [Concomitant]
     Active Substance: METOCLOPRAMIDE HYDROCHLORIDE
     Indication: Vomiting
     Dosage: 10 MILLIGRAM, TID
     Route: 048
     Dates: start: 20231222, end: 202402
  10. Sab simplex [Concomitant]
     Indication: Abdominal pain
     Dosage: 10 MILLIGRAM, TID
     Route: 048
     Dates: start: 20231222, end: 202402
  11. BUTYLSCOPOLAMINE BROMIDE [Concomitant]
     Active Substance: BUTYLSCOPOLAMINE BROMIDE
     Indication: Abdominal pain
     Dosage: 10 MILLIGRAM, PRN
     Route: 048
     Dates: start: 202312, end: 202403
  12. LAXOFALK [Concomitant]
     Indication: Constipation
     Dosage: 10 GRAM, QD
     Route: 048
     Dates: start: 202312, end: 202403

REACTIONS (1)
  - Neurological rehabilitation [Unknown]

NARRATIVE: CASE EVENT DATE: 20240221
